FAERS Safety Report 9041178 (Version 1)
Quarter: 2013Q1

REPORT INFORMATION
  Report Type: Spontaneous
  Country: US (occurrence: None)
  Receive Date: 20130123
  Receipt Date: 20130123
  Transmission Date: 20140127
  Serious: Yes (Life-Threatening, Other)
  Sender: FDA-Public Use
  Company Number: None

PATIENT
  Age: 39 Year
  Sex: Male
  Weight: 72.58 kg

DRUGS (2)
  1. FLUTICASONE [Suspect]
     Indication: RHINORRHOEA
     Dosage: 2 SPRAYS  AM + BEDTIME
     Dates: start: 20121207, end: 20121212
  2. FLUTICASONE [Suspect]
     Indication: LACRIMATION INCREASED
     Dosage: 2 SPRAYS  AM + BEDTIME
     Dates: start: 20121207, end: 20121212

REACTIONS (3)
  - Cough [None]
  - Choking [None]
  - Sinusitis [None]
